FAERS Safety Report 9869644 (Version 3)
Quarter: 2014Q3

REPORT INFORMATION
  Report Type: Report from Study
  Country: US (occurrence: US)
  Receive Date: 20140205
  Receipt Date: 20140805
  Transmission Date: 20150326
  Serious: Yes (Other)
  Sender: FDA-Public Use
  Company Number: US-ALEXION-A201304839

PATIENT

DRUGS (1)
  1. SOLIRIS [Suspect]
     Active Substance: ECULIZUMAB
     Indication: HAEMOLYTIC URAEMIC SYNDROME
     Dosage: 1200 MG, EVERY 42 DAYS
     Route: 042
     Dates: start: 20130207

REACTIONS (7)
  - Systemic lupus erythematosus [Unknown]
  - Fatigue [Unknown]
  - Renal failure [Unknown]
  - Myelodysplastic syndrome [Unknown]
  - Inappropriate schedule of drug administration [Unknown]
  - Platelet disorder [Unknown]
  - Dialysis [Unknown]

NARRATIVE: CASE EVENT DATE: 20140627
